FAERS Safety Report 7294622-0 (Version None)
Quarter: 2011Q1

REPORT INFORMATION
  Report Type: 
  Country: None (occurrence: None)
  Receive Date: 20110202
  Receipt Date: 20110118
  Transmission Date: 20110831
  Serious: Yes (Other)
  Sender: FDA-Public Use
  Company Number: AUR-APL-2011-00304

PATIENT
  Age: 54 Year
  Sex: Female
  Weight: 81.6475 kg

DRUGS (4)
  1. CALCIUM [Concomitant]
  2. CEFUROXIME AXETIL [Suspect]
     Dosage: 500MG - BID - ORAL
     Route: 048
     Dates: start: 20110110, end: 20110119
  3. FISH OIL [Concomitant]
  4. MULTI-VITAMINS [Concomitant]

REACTIONS (4)
  - PRODUCT SIZE ISSUE [None]
  - PRODUCT SOLUBILITY ABNORMAL [None]
  - PRODUCT TASTE ABNORMAL [None]
  - CHOKING [None]
